FAERS Safety Report 5417927-4 (Version None)
Quarter: 2007Q3

REPORT INFORMATION
  Report Type: 
  Country: None (occurrence: None)
  Receive Date: 20070817
  Receipt Date: 20070815
  Transmission Date: 20080115
  Serious: Yes (Hospitalization)
  Sender: FDA-Public Use
  Company Number: CAWYE179315AUG07

PATIENT
  Age: 48 Year
  Sex: Female

DRUGS (4)
  1. PREMARIN [Suspect]
     Route: 048
     Dates: start: 20061101, end: 20070801
  2. CALCIUM CHLORIDE [Concomitant]
     Route: 048
  3. ELMIRON [Concomitant]
     Route: 048
  4. PAXIL [Concomitant]
     Route: 048

REACTIONS (3)
  - CHOLELITHIASIS [None]
  - INFECTION [None]
  - PYREXIA [None]
